FAERS Safety Report 5580067-8 (Version None)
Quarter: 2007Q4

REPORT INFORMATION
  Report Type: 
  Country: None (occurrence: None)
  Receive Date: 20071227
  Receipt Date: 20071227
  Transmission Date: 20080405
  Serious: Yes (Other)
  Sender: FDA-Public Use
  Company Number: None

PATIENT
  Sex: Female
  Weight: 68.0396 kg

DRUGS (4)
  1. ZETIA [Suspect]
     Indication: HYPERLIPIDAEMIA
     Dosage: 10MG 1XDAY PO
     Route: 048
  2. ZETIA [Suspect]
     Indication: LOW DENSITY LIPOPROTEIN INCREASED
     Dosage: 10MG 1XDAY PO
     Route: 048
  3. ZETIA [Suspect]
     Indication: HYPERLIPIDAEMIA
     Dosage: 10MG 1XDAY PO
     Route: 048
  4. ZETIA [Suspect]
     Indication: LOW DENSITY LIPOPROTEIN INCREASED
     Dosage: 10MG 1XDAY PO
     Route: 048

REACTIONS (2)
  - EXTRASYSTOLES [None]
  - FEELING ABNORMAL [None]
